FAERS Safety Report 8328131 (Version 9)
Quarter: 2013Q4

REPORT INFORMATION
  Report Type: Spontaneous
  Country: US (occurrence: US)
  Receive Date: 20120109
  Receipt Date: 20131108
  Transmission Date: 20140711
  Serious: Yes (Hospitalization, Other)
  Sender: FDA-Public Use
  Company Number: US-ROCHE-1006228

PATIENT
  Age: 35 Year
  Sex: Female
  Weight: 76.27 kg

DRUGS (2)
  1. ACCUTANE [Suspect]
     Indication: ACNE
     Route: 065
     Dates: start: 20010131, end: 200102
  2. ENTOCORT [Concomitant]
     Indication: PRODUCT USED FOR UNKNOWN INDICATION

REACTIONS (8)
  - Crohn^s disease [Unknown]
  - Intestinal obstruction [Unknown]
  - Depression [Unknown]
  - Emotional distress [Unknown]
  - Inflammatory bowel disease [Unknown]
  - Large intestine perforation [Unknown]
  - Diverticulitis [Unknown]
  - Rheumatoid arthritis [Unknown]
